FAERS Safety Report 13620190 (Version 2)
Quarter: 2018Q2

REPORT INFORMATION
  Report Type: Spontaneous
  Country: US (occurrence: US)
  Receive Date: 20170607
  Receipt Date: 20180404
  Transmission Date: 20180711
  Serious: No
  Sender: FDA-Public Use
  Company Number: US-B.I. PHARMACEUTICALS,INC./RIDGEFIELD-2017-BI-030644

PATIENT
  Sex: Female

DRUGS (1)
  1. STIOLTO RESPIMAT [Suspect]
     Active Substance: OLODATEROL HYDROCHLORIDE\TIOTROPIUM BROMIDE MONOHYDRATE
     Indication: PRODUCT USED FOR UNKNOWN INDICATION
     Dosage: NR;  FORM STRENGTH: 2.5 MCG; FORMULATION: INHALATION SPRAY
     Route: 055
     Dates: start: 2017

REACTIONS (6)
  - Device malfunction [Unknown]
  - Choking [Unknown]
  - Asthenia [Unknown]
  - Drug ineffective [Unknown]
  - Gastroenteritis viral [Unknown]
  - Malaise [Unknown]
